FAERS Safety Report 6541530-6 (Version None)
Quarter: 2010Q1

REPORT INFORMATION
  Report Type: 
  Country: None (occurrence: None)
  Receive Date: 20100119
  Receipt Date: 20100118
  Transmission Date: 20100710
  Serious: Yes (Other)
  Sender: FDA-Public Use
  Company Number: IT-SANOFI-AVENTIS-2009SA004020

PATIENT
  Age: 63 Year
  Sex: Female

DRUGS (6)
  1. PLAVIX [Suspect]
     Route: 048
     Dates: start: 20091004, end: 20091025
  2. SIMVASTATIN [Suspect]
     Dosage: DOSE:1 UNIT(S)
     Route: 048
     Dates: start: 20091004, end: 20091025
  3. CONDIUREN [Suspect]
     Indication: HYPERTENSION
     Dosage: DOSE:1 UNIT(S)
     Route: 048
     Dates: start: 20091004, end: 20091025
  4. ALTIAZEM [Suspect]
     Indication: HYPERTENSION
     Dosage: DOSE:1 UNIT(S)
     Route: 048
     Dates: start: 20091004, end: 20091025
  5. CARDIAC THERAPY [Suspect]
     Indication: ARRHYTHMIA
     Dosage: DOSE:1 UNIT(S)
     Route: 048
     Dates: start: 20091004, end: 20091025
  6. SERETIDE DISKUS [Concomitant]
     Indication: ASTHMA
     Dosage: DOSE:2 UNIT(S)
     Route: 055
     Dates: start: 20091004, end: 20091116

REACTIONS (2)
  - EOSINOPHILIA [None]
  - RASH GENERALISED [None]
